FAERS Safety Report 23593626 (Version 1)
Quarter: 2024Q1

REPORT INFORMATION
  Report Type: Spontaneous
  Country: JP (occurrence: JP)
  Receive Date: 20240304
  Receipt Date: 20240304
  Transmission Date: 20240410
  Serious: Yes (Hospitalization)
  Sender: FDA-Public Use
  Company Number: JP-BRISTOL-MYERS SQUIBB COMPANY-2024-032684

PATIENT
  Age: 8 Decade
  Sex: Male

DRUGS (1)
  1. SOTYKTU [Suspect]
     Active Substance: DEUCRAVACITINIB
     Indication: Psoriasis
     Dosage: DOSE : 5MG;     FREQ : ONCE DAILY
     Route: 048
     Dates: start: 20231201

REACTIONS (2)
  - Blood beta-D-glucan increased [Unknown]
  - Pleural effusion [Unknown]
